FAERS Safety Report 5685171-1 (Version None)
Quarter: 2008Q1

REPORT INFORMATION
  Report Type: 
  Country: None (occurrence: None)
  Receive Date: 20080328
  Receipt Date: 20080314
  Transmission Date: 20080703
  Serious: Yes (Death)
  Sender: FDA-Public Use
  Company Number: US-GENENTECH-258297

PATIENT

DRUGS (3)
  1. AVASTIN [Suspect]
     Indication: RENAL CELL CARCINOMA
     Dosage: 10 MG/KG, DAYS 1+15
     Route: 042
  2. ERLOTINIB [Suspect]
     Indication: RENAL CELL CARCINOMA
     Dosage: 150 MG, QD
     Route: 048
  3. IMATINIB MESYLATE [Suspect]
     Indication: RENAL CELL CARCINOMA
     Dosage: 400 MG, QD
     Route: 048

REACTIONS (4)
  - CARDIAC ARREST [None]
  - DIARRHOEA [None]
  - INTESTINAL PERFORATION [None]
  - SEPSIS [None]
